FAERS Safety Report 10210349 (Version 1)
Quarter: 2014Q2

REPORT INFORMATION
  Report Type: Spontaneous
  Country: US (occurrence: US)
  Receive Date: 20140602
  Receipt Date: 20140602
  Transmission Date: 20141212
  Serious: No
  Sender: FDA-Public Use
  Company Number: US-PFIZER INC-2014149752

PATIENT
  Sex: Female

DRUGS (2)
  1. EFFEXOR XR [Suspect]
     Indication: ANXIETY
     Dosage: 225 MG, 1X/DAY
     Route: 048
     Dates: start: 2011, end: 201402
  2. EFFEXOR XR [Suspect]
     Indication: PANIC ATTACK

REACTIONS (4)
  - Mydriasis [Unknown]
  - Weight increased [Unknown]
  - Restless legs syndrome [Unknown]
  - Insomnia [Unknown]
